FAERS Safety Report 22098481 (Version 2)
Quarter: 2023Q2

REPORT INFORMATION
  Report Type: Report from Study
  Country: US (occurrence: US)
  Receive Date: 20230315
  Receipt Date: 20230405
  Transmission Date: 20230721
  Serious: Yes (Other)
  Sender: FDA-Public Use
  Company Number: US-VERICEL-US-VCEL-23-000051

PATIENT
  Sex: Male

DRUGS (1)
  1. MACI [Suspect]
     Active Substance: AUTOLOGOUS CULTURED CHONDROCYTES\SUS SCROFA COLLAGEN
     Indication: Chondropathy
     Dosage: UNK
     Route: 050
     Dates: start: 20230214, end: 20230214

REACTIONS (1)
  - Thrombosis [Not Recovered/Not Resolved]
